FAERS Safety Report 7463397-4 (Version None)
Quarter: 2011Q2

REPORT INFORMATION
  Report Type: 
  Country: None (occurrence: None)
  Receive Date: 20110506
  Receipt Date: 20110428
  Transmission Date: 20111010
  Serious: Yes (Other)
  Sender: FDA-Public Use
  Company Number: A0924942A

PATIENT
  Age: 60 Year
  Sex: Male

DRUGS (2)
  1. NO CONCURRENT MEDICATION [Concomitant]
  2. MALARONE [Suspect]
     Indication: PROPHYLAXIS
     Dosage: 250MG PER DAY
     Route: 048

REACTIONS (2)
  - BUNDLE BRANCH BLOCK RIGHT [None]
  - HEART RATE IRREGULAR [None]
